FAERS Safety Report 19732024 (Version 4)
Quarter: 2021Q3

REPORT INFORMATION
  Report Type: Report from Study
  Country: US (occurrence: US)
  Receive Date: 20210820
  Receipt Date: 20210928
  Transmission Date: 20211014
  Serious: Yes (Hospitalization, Other)
  Sender: FDA-Public Use
  Company Number: US-JAZZ-2021-US-015069

PATIENT
  Age: 47 Year
  Sex: Female

DRUGS (3)
  1. XYREM [Suspect]
     Active Substance: SODIUM OXYBATE
     Indication: CATAPLEXY
     Dosage: DOSE ADJUSTMENTS
     Route: 048
     Dates: start: 201808, end: 202001
  2. XYREM [Suspect]
     Active Substance: SODIUM OXYBATE
     Indication: NARCOLEPSY
     Dosage: 2.25 GRAM, BID
     Route: 048
     Dates: start: 201806, end: 201808
  3. XYREM [Suspect]
     Active Substance: SODIUM OXYBATE
     Dosage: 5.25 GRAM, BID
     Route: 048
     Dates: start: 202001

REACTIONS (5)
  - Suicidal ideation [Recovered/Resolved]
  - Sinusitis [Unknown]
  - Mood altered [Unknown]
  - Abnormal sleep-related event [Unknown]
  - Foot fracture [Unknown]

NARRATIVE: CASE EVENT DATE: 202104
